FAERS Safety Report 17582994 (Version 1)
Quarter: 2020Q1

REPORT INFORMATION
  Report Type: Spontaneous
  Country: US (occurrence: US)
  Receive Date: 20200325
  Receipt Date: 20200325
  Transmission Date: 20200409
  Serious: No
  Sender: FDA-Public Use
  Company Number: US-ASTELLAS-2020US006694

PATIENT
  Age: 54 Year
  Sex: Male

DRUGS (1)
  1. PADCEV [Suspect]
     Active Substance: ENFORTUMAB VEDOTIN-EJFV
     Indication: BLADDER CANCER STAGE IV
     Dosage: UNK, ONCE WEEKLY (ONCE A WEEK FOR 3 WEEKS, REST ONE WEEK, THEN ONCE A WEEK FOR 3 WEEKS)
     Route: 042
     Dates: start: 20200214

REACTIONS (10)
  - Chills [Recovered/Resolved]
  - Night sweats [Recovered/Resolved]
  - Weight decreased [Not Recovered/Not Resolved]
  - Headache [Recovered/Resolved]
  - Heart rate increased [Not Recovered/Not Resolved]
  - Abdominal pain upper [Not Recovered/Not Resolved]
  - Thirst [Recovered/Resolved]
  - Pyrexia [Not Recovered/Not Resolved]
  - Polyuria [Recovered/Resolved]
  - Hypophagia [Not Recovered/Not Resolved]

NARRATIVE: CASE EVENT DATE: 20200215
